FAERS Safety Report 8536096-5 (Version None)
Quarter: 2012Q3

REPORT INFORMATION
  Report Type: 
  Country: None (occurrence: None)
  Receive Date: 20120725
  Receipt Date: 20120709
  Transmission Date: 20120928
  Serious: Yes (Other)
  Sender: FDA-Public Use
  Company Number: FR-PFIZER INC-2012169126

PATIENT
  Age: 72 Year
  Sex: Male

DRUGS (9)
  1. VFEND [Suspect]
     Indication: LUNG DISORDER
     Dosage: 50 MG, 2X/DAY
     Route: 048
     Dates: start: 20111101
  2. OXALIPLATIN [Suspect]
     Indication: MANTLE CELL LYMPHOMA RECURRENT
     Dosage: UNK
     Route: 042
     Dates: end: 20101210
  3. METHYLPREDNISOLONE [Suspect]
     Dosage: UNK
     Route: 042
     Dates: end: 20110415
  4. MABTHERA [Suspect]
     Indication: MANTLE CELL LYMPHOMA RECURRENT
     Dosage: UNK
     Route: 042
     Dates: end: 20110415
  5. POLARAMINE [Suspect]
     Dosage: UNK
     Route: 048
     Dates: end: 20110415
  6. PLITICAN [Suspect]
     Dosage: UNK
     Route: 042
     Dates: end: 20101210
  7. ZOFRAN [Suspect]
     Dosage: UNK
     Route: 048
     Dates: end: 20101210
  8. CYTARABINE [Suspect]
     Indication: MANTLE CELL LYMPHOMA RECURRENT
     Dosage: UNK
     Route: 042
     Dates: end: 20101210
  9. SINGULAIR [Suspect]
     Dosage: UNK
     Route: 055

REACTIONS (4)
  - HOT FLUSH [None]
  - HYPOGONADISM [None]
  - BREAST PAIN [None]
  - GYNAECOMASTIA [None]
